FAERS Safety Report 8187942-9 (Version None)
Quarter: 2012Q1

REPORT INFORMATION
  Report Type: 
  Country: None (occurrence: None)
  Receive Date: 20120306
  Receipt Date: 20120302
  Transmission Date: 20120608
  Serious: Yes (Other)
  Sender: FDA-Public Use
  Company Number: GB-VIIV HEALTHCARE LIMITED-B0781815A

PATIENT
  Age: 46 Year
  Sex: Male
  Weight: 80 kg

DRUGS (6)
  1. ABACAVIR [Suspect]
     Indication: ANTIRETROVIRAL THERAPY
     Dosage: 600MG PER DAY
     Route: 048
  2. TENOFOVIR DISOPROXIL FUMARATE [Suspect]
     Indication: ANTIRETROVIRAL THERAPY
     Dosage: 245MG PER DAY
     Route: 048
  3. SODIUM ALGINATE [Suspect]
  4. REYATAZ [Suspect]
     Dosage: 300MG PER DAY
     Route: 048
     Dates: start: 20051228
  5. RITONAVIR [Suspect]
     Indication: ANTIRETROVIRAL THERAPY
     Dosage: 100MG PER DAY
     Route: 048
  6. LANSOPRAZOLE [Suspect]
     Dosage: 30MG PER DAY
     Dates: start: 20111207, end: 20111212

REACTIONS (1)
  - VIRAL LOAD INCREASED [None]
